FAERS Safety Report 16295285 (Version 1)
Quarter: 2019Q2

REPORT INFORMATION
  Report Type: Spontaneous
  Country: US (occurrence: US)
  Receive Date: 20190509
  Receipt Date: 20190509
  Transmission Date: 20190711
  Serious: No
  Sender: FDA-Public Use
  Company Number: US-009507513-1904USA009649

PATIENT
  Sex: Male

DRUGS (3)
  1. KEYTRUDA [Suspect]
     Active Substance: PEMBROLIZUMAB
     Indication: RENAL CELL CARCINOMA
     Dosage: UNK, Q3W
     Route: 042
     Dates: start: 20170425
  2. INLYTA [Concomitant]
     Active Substance: AXITINIB
     Indication: RENAL CELL CARCINOMA
     Dosage: 5 MILLIGRAM, BID
     Route: 048
     Dates: start: 20170425
  3. INLYTA [Concomitant]
     Active Substance: AXITINIB
     Dosage: 2 MILLIGRAM, BID
     Route: 048

REACTIONS (6)
  - Pain in extremity [Recovered/Resolved]
  - Oral discomfort [Recovered/Resolved]
  - Tongue discomfort [Recovered/Resolved]
  - Rash [Recovered/Resolved]
  - Rash macular [Recovered/Resolved]
  - Abdominal pain upper [Unknown]
